FAERS Safety Report 21519925 (Version 1)
Quarter: 2022Q4

REPORT INFORMATION
  Report Type: Report from Study
  Country: MX (occurrence: MX)
  Receive Date: 20221028
  Receipt Date: 20221028
  Transmission Date: 20230113
  Serious: Yes (Hospitalization)
  Sender: FDA-Public Use
  Company Number: MX-NOVARTISPH-NVSC2022MX242776

PATIENT
  Age: 90 Year
  Sex: Female
  Weight: 48 kg

DRUGS (2)
  1. EXFORGE [Suspect]
     Active Substance: AMLODIPINE BESYLATE\VALSARTAN
     Indication: Hypertension
     Dosage: 0.5 DOSAGE FORM, BID (START DATE 2 YEARS AGO APPROXIMATELY)
     Route: 048
  2. SPIRONOLACTONE [Concomitant]
     Active Substance: SPIRONOLACTONE
     Indication: Product used for unknown indication
     Dosage: 0.5 DOSAGE FORM (START DATE 2 YEARS AGO APPROXIMATELY)
     Route: 048

REACTIONS (3)
  - Infarction [Not Recovered/Not Resolved]
  - Body height decreased [Recovered/Resolved]
  - Kyphosis [Unknown]

NARRATIVE: CASE EVENT DATE: 20221021
